FAERS Safety Report 22983206 (Version 3)
Quarter: 2023Q4

REPORT INFORMATION
  Report Type: Spontaneous
  Country: US (occurrence: US)
  Receive Date: 20230926
  Receipt Date: 20231122
  Transmission Date: 20240109
  Serious: No
  Sender: FDA-Public Use
  Company Number: US-LUPIN PHARMACEUTICALS INC.-2023-08076

PATIENT

DRUGS (4)
  1. TESTOSTERONE GEL 1.62% [Suspect]
     Active Substance: TESTOSTERONE
     Indication: Sexual dysfunction
     Dosage: 6 PUMPS DAILY
     Route: 061
  2. TESTOSTERONE GEL 1.62% [Suspect]
     Active Substance: TESTOSTERONE
     Indication: Fatigue
  3. TESTOSTERONE GEL 1.62% [Suspect]
     Active Substance: TESTOSTERONE
     Indication: Arthralgia
  4. MELOXICAM [Concomitant]
     Active Substance: MELOXICAM
     Indication: Antiinflammatory therapy
     Dosage: UNK
     Route: 065

REACTIONS (2)
  - Overdose [Unknown]
  - Product use in unapproved indication [Unknown]
